FAERS Safety Report 9804409 (Version 1)
Quarter: 2014Q1

REPORT INFORMATION
  Report Type: Report from Study
  Country: AR (occurrence: AR)
  Receive Date: 20140108
  Receipt Date: 20140108
  Transmission Date: 20141002
  Serious: Yes (Death, Hospitalization, Other)
  Sender: FDA-Public Use
  Company Number: PHHY2014AR001810

PATIENT
  Sex: Male

DRUGS (2)
  1. DIOVAN [Suspect]
     Indication: CEREBRAL DISORDER
     Dosage: 80 MG, DAILY
     Route: 048
  2. DIOVAN [Suspect]
     Indication: OFF LABEL USE

REACTIONS (1)
  - Respiratory distress [Fatal]
